FAERS Safety Report 23180415 (Version 1)
Quarter: 2023Q4

REPORT INFORMATION
  Report Type: Spontaneous
  Country: ES (occurrence: ES)
  Receive Date: 20231114
  Receipt Date: 20231114
  Transmission Date: 20240110
  Serious: Yes (Other)
  Sender: FDA-Public Use
  Company Number: ES-BAXTER-2023BAX035544

PATIENT

DRUGS (22)
  1. DOXORUBICIN [Suspect]
     Active Substance: DOXORUBICIN
     Indication: Plasma cell myeloma refractory
     Dosage: UNK (SECOND LINE TREATMENT)
     Route: 065
     Dates: start: 20210310, end: 20210420
  2. DOXORUBICIN [Suspect]
     Active Substance: DOXORUBICIN
     Dosage: UNK, (FIFTH LINE TREATMENT)
     Route: 065
     Dates: start: 20211108, end: 20220714
  3. CYCLOPHOSPHAMIDE [Suspect]
     Active Substance: CYCLOPHOSPHAMIDE
     Indication: Plasma cell myeloma refractory
     Dosage: UNK (SECOND LINE TREATMENT)
     Route: 065
     Dates: start: 20210310, end: 20210420
  4. BORTEZOMIB [Suspect]
     Active Substance: BORTEZOMIB
     Indication: Plasma cell myeloma refractory
     Dosage: UNK (FIRST LINE TREATMENT)
     Route: 065
     Dates: start: 20200825, end: 20210211
  5. BORTEZOMIB [Suspect]
     Active Substance: BORTEZOMIB
     Dosage: UNK (MOST RECENT TREATMENT)
     Route: 065
     Dates: start: 20230427, end: 20231106
  6. LENALIDOMIDE [Suspect]
     Active Substance: LENALIDOMIDE
     Indication: Plasma cell myeloma refractory
     Dosage: UNK (FIRST LINE TREATMENT)
     Route: 065
     Dates: start: 20200825, end: 20210211
  7. DEXAMETHASONE [Suspect]
     Active Substance: DEXAMETHASONE
     Indication: Plasma cell myeloma refractory
     Dosage: UNK (FIRST LINE TREATMENT)
     Route: 065
     Dates: start: 20200825, end: 20210211
  8. DEXAMETHASONE [Suspect]
     Active Substance: DEXAMETHASONE
     Dosage: UNK (SECOND LINE TREATMENT)
     Route: 065
     Dates: start: 20210310, end: 20210420
  9. DEXAMETHASONE [Suspect]
     Active Substance: DEXAMETHASONE
     Dosage: UNK (SIXTH LINE TREATMENT)
     Route: 065
     Dates: start: 20220721, end: 20230426
  10. DEXAMETHASONE [Suspect]
     Active Substance: DEXAMETHASONE
     Dosage: UNK (MOST RECENT TREATMENT)
     Route: 065
     Dates: start: 20230427, end: 20231106
  11. CARFILZOMIB [Suspect]
     Active Substance: CARFILZOMIB
     Indication: Plasma cell myeloma refractory
     Dosage: UNK (SECOND LINE TREATMENT)
     Route: 065
     Dates: start: 20210310, end: 20210420
  12. CARFILZOMIB [Suspect]
     Active Substance: CARFILZOMIB
     Dosage: UNK (FIFTH LINE TREATMENT)
     Route: 065
     Dates: start: 20211108, end: 20220714
  13. MELPHALAN [Suspect]
     Active Substance: MELPHALAN
     Indication: Plasma cell myeloma refractory
     Dosage: UNK (THIRD LINE TREATMENT)
     Route: 065
     Dates: start: 20210525, end: 20210527
  14. MELPHALAN [Suspect]
     Active Substance: MELPHALAN
     Dosage: UNK (FOURTH LINE TREATMENT)
     Route: 065
     Dates: start: 20210707, end: 20210709
  15. POMALIDOMIDE [Suspect]
     Active Substance: POMALIDOMIDE
     Indication: Plasma cell myeloma refractory
     Dosage: UNK (SIXTH LINE TREATMENT)
     Route: 065
     Dates: start: 20220721, end: 20230426
  16. ISATUXIMAB [Suspect]
     Active Substance: ISATUXIMAB
     Indication: Plasma cell myeloma refractory
     Dosage: UNK (SIXTH LINE TREATMENT)
     Route: 065
     Dates: start: 20220721, end: 20230426
  17. ETOPOSIDE [Suspect]
     Active Substance: ETOPOSIDE
     Indication: Plasma cell myeloma refractory
     Dosage: UNK (SECOND LINE TREATMENT)
     Route: 065
     Dates: start: 20210310, end: 20210420
  18. ETOPOSIDE [Suspect]
     Active Substance: ETOPOSIDE
     Dosage: UNK (FIFTH LINE TREATMENT)
     Route: 065
     Dates: start: 20211108, end: 20220714
  19. CISPLATIN [Suspect]
     Active Substance: CISPLATIN
     Indication: Plasma cell myeloma refractory
     Dosage: UNK (SECOND LINE TREATMENT)
     Route: 065
     Dates: start: 20210310, end: 20210420
  20. CISPLATIN [Suspect]
     Active Substance: CISPLATIN
     Dosage: UNK (FIFTH LINE TREATMENT)
     Route: 065
     Dates: start: 20211108, end: 20220714
  21. THALIDOMIDE [Suspect]
     Active Substance: THALIDOMIDE
     Indication: Plasma cell myeloma refractory
     Dosage: UNK (MOST RECENT TREATMENT)
     Route: 065
     Dates: start: 20230427, end: 20231106
  22. DARATUMUMAB [Suspect]
     Active Substance: DARATUMUMAB
     Indication: Plasma cell myeloma refractory
     Dosage: UNK (MOST RECENT TREATMENT)
     Route: 065
     Dates: start: 20230427, end: 20231106

REACTIONS (1)
  - Plasma cell myeloma [Unknown]
